FAERS Safety Report 21892753 (Version 1)
Quarter: 2023Q1

REPORT INFORMATION
  Report Type: Spontaneous
  Country: MX (occurrence: MX)
  Receive Date: 20230120
  Receipt Date: 20230120
  Transmission Date: 20230418
  Serious: Yes (Other)
  Sender: FDA-Public Use
  Company Number: MX-BAYER-2023P004619

PATIENT

DRUGS (1)
  1. LAROTRECTINIB [Suspect]
     Active Substance: LAROTRECTINIB
     Indication: Anaplastic astrocytoma
     Dosage: 100 MG, BID
     Route: 048
     Dates: start: 20210304, end: 20220615

REACTIONS (1)
  - Anaplastic astrocytoma [None]
